FAERS Safety Report 4377726-1 (Version None)
Quarter: 2004Q2

REPORT INFORMATION
  Report Type: 
  Country: None (occurrence: None)
  Receive Date: 20040615
  Receipt Date: 20040604
  Transmission Date: 20050107
  Serious: Yes (Other)
  Sender: FDA-Public Use
  Company Number: PHEH2004US06155

PATIENT
  Age: 43 Year
  Sex: Female

DRUGS (2)
  1. ZELNORM [Suspect]
     Indication: IRRITABLE BOWEL SYNDROME
     Dosage: UNK, BID
     Dates: start: 20040401, end: 20040501
  2. PAXIL [Suspect]
     Indication: DEPRESSION
     Dosage: 12.5 MG, QD
     Dates: start: 19990101

REACTIONS (3)
  - ANXIETY [None]
  - DEPRESSION [None]
  - DRUG INTERACTION INHIBITION [None]
